FAERS Safety Report 21229378 (Version 3)
Quarter: 2023Q2

REPORT INFORMATION
  Report Type: Spontaneous
  Country: US (occurrence: US)
  Receive Date: 20220818
  Receipt Date: 20230515
  Transmission Date: 20230721
  Serious: No
  Sender: FDA-Public Use
  Company Number: US-LUPIN PHARMACEUTICALS INC.-2022-10313

PATIENT
  Sex: Male

DRUGS (1)
  1. ALBUTEROL SULFATE [Suspect]
     Active Substance: ALBUTEROL SULFATE
     Indication: Dyspnoea
     Dosage: 1 DOSAGE FORM, PRN, 1 PUFF PER MOUTH 4-6 HOURS AS NEEDED
     Dates: start: 20220804

REACTIONS (3)
  - Wrong technique in product usage process [Unknown]
  - Wrong technique in device usage process [Unknown]
  - No adverse event [Unknown]
